FAERS Safety Report 22520324 (Version 3)
Quarter: 2025Q2

REPORT INFORMATION
  Report Type: Spontaneous
  Country: JP (occurrence: JP)
  Receive Date: 20230605
  Receipt Date: 20250613
  Transmission Date: 20250717
  Serious: Yes (Death, Life-Threatening)
  Sender: PFIZER
  Company Number: JP-PFIZER INC-PV202300098167

PATIENT
  Sex: Female

DRUGS (2)
  1. MEROPENEM [Suspect]
     Active Substance: MEROPENEM
     Indication: Pneumonia aspiration
     Route: 041
  2. MEROPENEM [Suspect]
     Active Substance: MEROPENEM
     Dosage: 0.5 G, 1X/DAY
     Route: 041

REACTIONS (2)
  - Hyperventilation [Fatal]
  - Dyspnoea [Fatal]
